FAERS Safety Report 8071595-4 (Version None)
Quarter: 2012Q1

REPORT INFORMATION
  Report Type: 
  Country: None (occurrence: None)
  Receive Date: 20120125
  Receipt Date: 20120118
  Transmission Date: 20120608
  Serious: Yes (Hospitalization)
  Sender: FDA-Public Use
  Company Number: NO-PFIZER INC-2011146227

PATIENT
  Age: 85 Year
  Sex: Male

DRUGS (7)
  1. ZOPICLONE [Concomitant]
  2. MAGNESIUM [Suspect]
     Indication: PAIN IN EXTREMITY
     Dosage: 300 MG, 1X/DAY
     Route: 048
     Dates: end: 20110520
  3. ACETAMINOPHEN [Concomitant]
  4. BUMETANIDE [Concomitant]
  5. RAMIPRIL [Suspect]
     Dosage: 1.25 MG, 2X/DAY
     Route: 048
     Dates: end: 20110520
  6. VITAMIN B-12 [Concomitant]
  7. WARFARIN [Concomitant]

REACTIONS (9)
  - FATIGUE [None]
  - HYPOTENSION [None]
  - MALAISE [None]
  - DIARRHOEA [None]
  - LISTLESS [None]
  - WEIGHT DECREASED [None]
  - ASTHENIA [None]
  - DECREASED APPETITE [None]
  - NAUSEA [None]
